FAERS Safety Report 7154131-6 (Version None)
Quarter: 2010Q4

REPORT INFORMATION
  Report Type: 
  Country: None (occurrence: None)
  Receive Date: 20101213
  Receipt Date: 20101202
  Transmission Date: 20110411
  Serious: Yes (Death, Hospitalization)
  Sender: FDA-Public Use
  Company Number: MX-SANOFI-AVENTIS-2010SA073308

PATIENT
  Age: 64 Year
  Sex: Female

DRUGS (3)
  1. LANTUS [Suspect]
     Indication: TYPE 2 DIABETES MELLITUS
     Dates: start: 20070101, end: 20100101
  2. ALL OTHER THERAPEUTIC PRODUCTS [Concomitant]
     Indication: THROMBOSIS PROPHYLAXIS
     Route: 048
     Dates: start: 20050101
  3. MOEXIPRIL HYDROCHLORIDE [Concomitant]
     Route: 048
     Dates: start: 20060101

REACTIONS (4)
  - CEREBROVASCULAR DISORDER [None]
  - COUGH [None]
  - DYSPNOEA [None]
  - PNEUMONIA [None]
